FAERS Safety Report 4488730-7 (Version None)
Quarter: 2004Q4

REPORT INFORMATION
  Report Type: 
  Country: None (occurrence: None)
  Receive Date: 20041025
  Receipt Date: 20041012
  Transmission Date: 20050328
  Serious: Yes (Hospitalization)
  Sender: FDA-Public Use
  Company Number: 2004030587

PATIENT
  Sex: Male
  Weight: 109 kg

DRUGS (6)
  1. TAHOR (ATORVASTATIN) [Suspect]
     Indication: ILL-DEFINED DISORDER
     Dosage: 10 MG (1 IN 1 D)
  2. AMLODIPINE [Concomitant]
  3. LOSARTAN (LOSARTAN) [Concomitant]
  4. BETA BLOCKING AGENTS (BETA BLOCKING AGENTS) [Concomitant]
  5. METFORMIN HCL [Concomitant]
  6. INSULIN [Concomitant]

REACTIONS (2)
  - BLOOD GLUCOSE INCREASED [None]
  - MYOCARDIAL INFARCTION [None]
